FAERS Safety Report 12217886 (Version 1)
Quarter: 2016Q1

REPORT INFORMATION
  Report Type: Spontaneous
  Country: US (occurrence: None)
  Receive Date: 20160328
  Receipt Date: 20160328
  Transmission Date: 20160526
  Serious: No
  Sender: FDA-Public Use
  Company Number: None

PATIENT
  Age: 44 Year
  Sex: Female
  Weight: 84.82 kg

DRUGS (1)
  1. HYDROCODONE, 10 MG ACTAVIS [Suspect]
     Active Substance: HYDROCODONE
     Indication: SCIATICA
     Dosage: 1 TABLET(S) EVERY 6 HOURS TAKEN BY MOUTH
     Route: 048

REACTIONS (4)
  - Product quality issue [None]
  - Drug ineffective [None]
  - Vomiting [None]
  - Headache [None]
